FAERS Safety Report 5684281-2 (Version None)
Quarter: 2008Q1

REPORT INFORMATION
  Report Type: 
  Country: None (occurrence: None)
  Receive Date: 20080328
  Receipt Date: 20080327
  Transmission Date: 20080703
  Serious: Yes (Other)
  Sender: FDA-Public Use
  Company Number: A0706344A

PATIENT
  Age: 61 Year
  Sex: Female

DRUGS (1)
  1. ALLI [Suspect]

REACTIONS (4)
  - DRUG INEFFECTIVE [None]
  - INFLUENZA [None]
  - PNEUMONIA [None]
  - WEIGHT INCREASED [None]
